FAERS Safety Report 8594525-5 (Version None)
Quarter: 2012Q3

REPORT INFORMATION
  Report Type: 
  Country: None (occurrence: None)
  Receive Date: 20120815
  Receipt Date: 20120613
  Transmission Date: 20120928
  Serious: No
  Sender: FDA-Public Use
  Company Number: US-MYLANLABS-2012S1012010

PATIENT
  Age: 68 Year
  Sex: Female

DRUGS (7)
  1. ISOSULFAN BLUE [Suspect]
     Indication: SCAN LYMPH NODES
     Route: 058
     Dates: start: 20120612, end: 20120612
  2. PEPCID [Concomitant]
     Route: 048
     Dates: start: 20120612, end: 20120612
  3. BUPIVACAINE HCL [Concomitant]
     Route: 061
     Dates: start: 20120612, end: 20120612
  4. REGLAN [Concomitant]
     Route: 048
     Dates: start: 20120612, end: 20120612
  5. MIDAZOLAM [Concomitant]
     Route: 042
     Dates: start: 20120612, end: 20120612
  6. FENTANYL [Concomitant]
     Route: 042
     Dates: start: 20120612, end: 20120612
  7. CEFAZOLIN [Concomitant]
     Route: 042
     Dates: start: 20120612, end: 20120612

REACTIONS (1)
  - SKIN DISCOLOURATION [None]
